FAERS Safety Report 13698717 (Version 1)
Quarter: 2017Q2

REPORT INFORMATION
  Report Type: Spontaneous
  Country: AU (occurrence: AU)
  Receive Date: 20170628
  Receipt Date: 20170628
  Transmission Date: 20170830
  Serious: Yes (Hospitalization)
  Sender: FDA-Public Use
  Company Number: AU-VISTAPHARM, INC.-VER201706-000154

PATIENT
  Age: 63 Year
  Sex: Male

DRUGS (3)
  1. PREDNISOLONE. [Suspect]
     Active Substance: PREDNISOLONE
  2. CYCLOSPORIN [Suspect]
     Active Substance: CYCLOSPORINE
  3. LEFLUONOMIDE [Suspect]
     Active Substance: LEFLUNOMIDE

REACTIONS (3)
  - Zika virus infection [Unknown]
  - Dengue fever [Unknown]
  - Influenza [Unknown]
